FAERS Safety Report 6153298-6 (Version None)
Quarter: 2009Q2

REPORT INFORMATION
  Report Type: 
  Country: None (occurrence: None)
  Receive Date: 20090409
  Receipt Date: 20090331
  Transmission Date: 20091009
  Serious: Yes (Hospitalization)
  Sender: FDA-Public Use
  Company Number: TCI2009A00994

PATIENT
  Age: 73 Year
  Sex: Male

DRUGS (2)
  1. ACTOS [Suspect]
     Indication: TYPE 2 DIABETES MELLITUS
     Dosage: 15 MG (15 MG, 1 IN 1 D) PER ORAL
     Route: 048
     Dates: start: 20080207, end: 20090309
  2. ASPIRIN [Concomitant]

REACTIONS (7)
  - CARDIAC FAILURE CONGESTIVE [None]
  - CARDIOMEGALY [None]
  - CYANOSIS [None]
  - OXYGEN SATURATION DECREASED [None]
  - PLEURAL EFFUSION [None]
  - PNEUMONIA [None]
  - WEIGHT INCREASED [None]
